APPROVED DRUG PRODUCT: URSODIOL
Active Ingredient: URSODIOL
Strength: 500MG
Dosage Form/Route: TABLET;ORAL
Application: A200826 | Product #002
Applicant: IMPAX LABORATORIES INC
Approved: Dec 23, 2011 | RLD: No | RS: No | Type: DISCN